FAERS Safety Report 4650168-7 (Version None)
Quarter: 2005Q2

REPORT INFORMATION
  Report Type: 
  Country: None (occurrence: None)
  Receive Date: 20050428
  Receipt Date: 20050418
  Transmission Date: 20051028
  Serious: Yes (Hospitalization)
  Sender: FDA-Public Use
  Company Number: 2005042191

PATIENT
  Age: 78 Year
  Sex: Male

DRUGS (5)
  1. CARDURA [Suspect]
     Indication: CARDIAC FAILURE
     Dosage: 4 MG (1 IN 1 D), ORAL
     Route: 048
     Dates: start: 20050109, end: 20050212
  2. DILTIAZEM HYDROCHLORIDE [Suspect]
     Indication: CARDIAC FAILURE
     Dosage: 240 MG (1 IN 1 D), ORAL
     Route: 048
     Dates: start: 20050109, end: 20050212
  3. ALLOPURINOL [Suspect]
     Indication: CARDIAC FAILURE
     Dosage: 300 MG (1 IN 1 D), ORAL
     Route: 048
     Dates: start: 20050109, end: 20050212
  4. FUROSEMIDE [Concomitant]
  5. WARFARIN SODIUM [Concomitant]

REACTIONS (3)
  - AGRANULOCYTOSIS [None]
  - LICHENOID KERATOSIS [None]
  - RASH MACULO-PAPULAR [None]
